FAERS Safety Report 7917496 (Version 3)
Quarter: 2013Q2

REPORT INFORMATION
  Report Type: Spontaneous
  Country: US (occurrence: US)
  Receive Date: 20110428
  Receipt Date: 20130517
  Transmission Date: 20140414
  Serious: No
  Sender: FDA-Public Use
  Company Number: US-BIOGENIDEC-2011BI014546

PATIENT
  Age: 46 Year
  Sex: Female

DRUGS (3)
  1. TYSABRI [Suspect]
     Indication: MULTIPLE SCLEROSIS
     Route: 042
     Dates: start: 20110311, end: 20110311
  2. AVONEX [Concomitant]
     Indication: MULTIPLE SCLEROSIS
     Route: 030
  3. METHOTREXATE [Concomitant]

REACTIONS (6)
  - Peripheral coldness [Unknown]
  - Sensory disturbance [Recovered/Resolved]
  - Blood pressure decreased [Recovered/Resolved]
  - Mobility decreased [Recovered/Resolved]
  - Hypersensitivity [Unknown]
  - Urticaria [Unknown]
